FAERS Safety Report 5902625-0 (Version None)
Quarter: 2008Q3

REPORT INFORMATION
  Report Type: 
  Country: None (occurrence: None)
  Receive Date: 20080926
  Receipt Date: 20080916
  Transmission Date: 20090109
  Serious: Yes (Hospitalization, Other)
  Sender: FDA-Public Use
  Company Number: 2008BI024163

PATIENT
  Age: 61 Year
  Sex: Female
  Weight: 81.1939 kg

DRUGS (17)
  1. AVONEX [Suspect]
     Indication: MULTIPLE SCLEROSIS
     Dosage: 30 UG; QW; IM
     Route: 030
     Dates: start: 20070601
  2. SPIRIVA [Concomitant]
  3. ALBUTEROL [Concomitant]
  4. SYMBICORT INHALER [Concomitant]
  5. ZYRTEC [Concomitant]
  6. ASPIRIN [Concomitant]
  7. ROPINIROLE [Concomitant]
  8. VITAMIN D [Concomitant]
  9. LASIX [Concomitant]
  10. TUSSINEX [Concomitant]
  11. LYRICA [Concomitant]
  12. SINGULAIR [Concomitant]
  13. KEPPRA [Concomitant]
  14. ASCORBIC ACID [Concomitant]
  15. FUMARATE (NOS) [Concomitant]
  16. FELBATOL [Concomitant]
  17. NEXIUM [Concomitant]

REACTIONS (10)
  - BLINDNESS [None]
  - BLOOD GLUCOSE DECREASED [None]
  - CENTRAL NERVOUS SYSTEM INFECTION [None]
  - CONDITION AGGRAVATED [None]
  - CONVULSION [None]
  - DYSURIA [None]
  - ESCHERICHIA URINARY TRACT INFECTION [None]
  - GRAND MAL CONVULSION [None]
  - HALLUCINATION [None]
  - HYPOTENSION [None]
